FAERS Safety Report 7662049-5 (Version None)
Quarter: 2011Q3

REPORT INFORMATION
  Report Type: 
  Country: None (occurrence: None)
  Receive Date: 20110805
  Receipt Date: 20101208
  Transmission Date: 20111222
  Serious: No
  Sender: FDA-Public Use
  Company Number: US-ABBOTT-10P-163-0690373-00

PATIENT
  Sex: Female
  Weight: 72.64 kg

DRUGS (4)
  1. ASPIRIN [Concomitant]
     Indication: PRODUCT USED FOR UNKNOWN INDICATION
  2. VITAMIN TAB [Concomitant]
     Indication: PRODUCT USED FOR UNKNOWN INDICATION
  3. NIASPAN [Suspect]
     Indication: BLOOD TRIGLYCERIDES ABNORMAL
     Dates: start: 20101122, end: 20101207
  4. NIASPAN [Suspect]
     Indication: FAMILIAL RISK FACTOR

REACTIONS (5)
  - PARAESTHESIA [None]
  - RASH MACULAR [None]
  - FLUSHING [None]
  - ERYTHEMA [None]
  - DRUG EFFECT DECREASED [None]
